FAERS Safety Report 7904373-4 (Version None)
Quarter: 2011Q4

REPORT INFORMATION
  Report Type: 
  Country: None (occurrence: None)
  Receive Date: 20111109
  Receipt Date: 20111031
  Transmission Date: 20120403
  Serious: Yes (Hospitalization)
  Sender: FDA-Public Use
  Company Number: US-BAYER-201012556NA

PATIENT
  Age: 18 Year
  Sex: Female
  Weight: 90.5 kg

DRUGS (5)
  1. I.V. SOLUTIONS [Concomitant]
  2. YASMIN [Suspect]
     Indication: PRODUCT USED FOR UNKNOWN INDICATION
     Dosage: 1  DF (DAILY DOSE), , ORAL
     Route: 048
     Dates: start: 20050513, end: 20060601
  3. IBUPROFEN [Concomitant]
  4. TORADOL [Concomitant]
  5. PHENERGAN [Concomitant]

REACTIONS (3)
  - CHOLECYSTITIS ACUTE [None]
  - EMOTIONAL DISTRESS [None]
  - CHOLELITHIASIS [None]
